FAERS Safety Report 4531006-X (Version None)
Quarter: 2004Q4

REPORT INFORMATION
  Report Type: 
  Country: None (occurrence: None)
  Receive Date: 20041217
  Receipt Date: 20041208
  Transmission Date: 20050328
  Serious: Yes (Death)
  Sender: FDA-Public Use
  Company Number: TH-MERCK-0412THA00003

PATIENT
  Age: 32 Year
  Sex: Female

DRUGS (1)
  1. CANCIDAS [Suspect]
     Route: 042
     Dates: start: 20040408, end: 20040418

REACTIONS (2)
  - BACTERIAL SEPSIS [None]
  - PRURITUS [None]
